FAERS Safety Report 4663679-5 (Version None)
Quarter: 2005Q2

REPORT INFORMATION
  Report Type: 
  Country: None (occurrence: None)
  Receive Date: 20050517
  Receipt Date: 20050510
  Transmission Date: 20051028
  Serious: Yes (Hospitalization)
  Sender: FDA-Public Use
  Company Number: 05-05-0814

PATIENT
  Age: 76 Year
  Sex: Male

DRUGS (9)
  1. PROBENECID + COLCHICINE [Suspect]
     Indication: FAMILIAL MEDITERRANEAN FEVER
     Dosage: 1.5-0.5MG QD
  2. CLARITHROMYCIN [Suspect]
     Indication: HELICOBACTER INFECTION
     Dosage: 1G QD
  3. ACEBUTOLOL [Concomitant]
  4. RAMIPRIL [Concomitant]
  5. SPIRONOLACTONE [Concomitant]
  6. MOLSIDOMINE [Concomitant]
  7. ACETYLSALICYLATE SODIUM [Concomitant]
  8. AMOXICILLIN [Concomitant]
  9. OMEPRAZOLE [Concomitant]

REACTIONS (18)
  - ABDOMINAL PAIN [None]
  - ALOPECIA [None]
  - BLOOD CREATININE INCREASED [None]
  - BLOOD UREA INCREASED [None]
  - C-REACTIVE PROTEIN INCREASED [None]
  - CHOLESTASIS [None]
  - DEHYDRATION [None]
  - DIARRHOEA HAEMORRHAGIC [None]
  - GASTRITIS EROSIVE [None]
  - HAEMATURIA [None]
  - HELICOBACTER INFECTION [None]
  - HYPONATRAEMIA [None]
  - LIPASE INCREASED [None]
  - OLIGURIA [None]
  - PANCYTOPENIA [None]
  - PROTEINURIA [None]
  - PYREXIA [None]
  - VOMITING [None]
